FAERS Safety Report 4580366-2 (Version None)
Quarter: 2005Q1

REPORT INFORMATION
  Report Type: 
  Country: None (occurrence: None)
  Receive Date: 20050214
  Receipt Date: 20040107
  Transmission Date: 20050727
  Serious: No
  Sender: FDA-Public Use
  Company Number: US-GLAXOSMITHKLINE-A0491925A

PATIENT
  Age: 32 Month
  Sex: Male

DRUGS (3)
  1. LAMICTAL [Suspect]
     Dosage: 2MG ALTERNATE DAYS
     Route: 048
     Dates: start: 20031226
  2. AMOXICILLIN [Concomitant]
  3. OMNICEF [Concomitant]

REACTIONS (1)
  - DYSKINESIA [None]
